FAERS Safety Report 5989112-9 (Version None)
Quarter: 2008Q4

REPORT INFORMATION
  Report Type: 
  Country: None (occurrence: None)
  Receive Date: 20081210
  Receipt Date: 20081203
  Transmission Date: 20090506
  Serious: Yes (Hospitalization)
  Sender: FDA-Public Use
  Company Number: FR-JNJFOC-20081200772

PATIENT
  Age: 87 Year
  Sex: Male

DRUGS (3)
  1. OFLOXACIN [Suspect]
     Indication: URINARY TRACT INFECTION
     Route: 048
  2. KARDEGIC [Suspect]
     Route: 048
  3. KARDEGIC [Suspect]
     Indication: PROPHYLAXIS
     Route: 048

REACTIONS (3)
  - ERYTHEMA [None]
  - EYELID OEDEMA [None]
  - PURPURA [None]
